FAERS Safety Report 8328367-2 (Version None)
Quarter: 2012Q2

REPORT INFORMATION
  Report Type: 
  Country: None (occurrence: None)
  Receive Date: 20120502
  Receipt Date: 20100624
  Transmission Date: 20120825
  Serious: No
  Sender: FDA-Public Use
  Company Number: US-TEVA-2010003451

PATIENT
  Sex: Female

DRUGS (1)
  1. NUVIGIL [Suspect]
     Indication: FATIGUE
     Route: 048

REACTIONS (3)
  - INSOMNIA [None]
  - PSYCHOMOTOR HYPERACTIVITY [None]
  - INTENTIONAL DRUG MISUSE [None]
